FAERS Safety Report 14970266 (Version 1)
Quarter: 2018Q2

REPORT INFORMATION
  Report Type: Spontaneous
  Country: US (occurrence: US)
  Receive Date: 20180604
  Receipt Date: 20180604
  Transmission Date: 20180711
  Serious: No
  Sender: FDA-Public Use
  Company Number: US-VIFOR (INTERNATIONAL) INC.-VIT-2018-04953

PATIENT
  Sex: Male

DRUGS (20)
  1. LACTULOSE. [Concomitant]
     Active Substance: LACTULOSE
  2. CARVEDILOL. [Concomitant]
     Active Substance: CARVEDILOL
  3. VALSARTAN. [Concomitant]
     Active Substance: VALSARTAN
  4. TORASEMIDE [Concomitant]
     Active Substance: TORSEMIDE
  5. TOCOPHEROL [Concomitant]
     Active Substance: TOCOPHEROL
  6. CYANOCOBALAMIN. [Concomitant]
     Active Substance: CYANOCOBALAMIN
  7. VELTASSA [Suspect]
     Active Substance: PATIROMER
     Indication: HYPERKALAEMIA
     Route: 048
     Dates: start: 20180307
  8. FERROUS SULFATE. [Concomitant]
     Active Substance: FERROUS SULFATE
  9. FINASTERIDE. [Concomitant]
     Active Substance: FINASTERIDE
  10. GABAPENTIN. [Concomitant]
     Active Substance: GABAPENTIN
  11. SYNTHROID [Concomitant]
     Active Substance: LEVOTHYROXINE SODIUM
  12. SULFASALAZINE. [Concomitant]
     Active Substance: SULFASALAZINE
  13. LORATADINE. [Concomitant]
     Active Substance: LORATADINE
  14. ULORIC [Concomitant]
     Active Substance: FEBUXOSTAT
  15. PLAVIX [Concomitant]
     Active Substance: CLOPIDOGREL BISULFATE
  16. COLECALCIFEROL [Concomitant]
     Active Substance: CHOLECALCIFEROL
  17. FOLIC ACID. [Concomitant]
     Active Substance: FOLIC ACID
  18. ROSUVASTATIN CALCIUM. [Concomitant]
     Active Substance: ROSUVASTATIN CALCIUM
  19. MAGNESIUM OXIDE. [Concomitant]
     Active Substance: MAGNESIUM OXIDE
  20. NOVOLOG MIX 70/30 [Concomitant]
     Active Substance: INSULIN ASPART

REACTIONS (1)
  - Psoriasis [Unknown]

NARRATIVE: CASE EVENT DATE: 2018
